FAERS Safety Report 19697080 (Version 1)
Quarter: 2021Q3

REPORT INFORMATION
  Report Type: Other
  Country: CA (occurrence: CA)
  Receive Date: 20210813
  Receipt Date: 20210813
  Transmission Date: 20211014
  Serious: Yes (Other)
  Sender: FDA-Public Use
  Company Number: CA-GLENMARK PHARMACEUTICALS-2021GMK067203

PATIENT

DRUGS (3)
  1. GABAPENTIN. [Suspect]
     Active Substance: GABAPENTIN
     Dosage: 600 MILLIGRAM, TID
     Route: 065
  2. FINGOLIMOD. [Suspect]
     Active Substance: FINGOLIMOD
     Indication: RELAPSING-REMITTING MULTIPLE SCLEROSIS
     Dosage: UNK
     Route: 048
  3. GABAPENTIN. [Suspect]
     Active Substance: GABAPENTIN
     Indication: PAIN
     Dosage: 900 MILLIGRAM, TID
     Route: 065

REACTIONS (19)
  - Disturbance in attention [Not Recovered/Not Resolved]
  - Intentional product misuse [Unknown]
  - Multiple sclerosis [Not Recovered/Not Resolved]
  - Balance disorder [Not Recovered/Not Resolved]
  - Aphasia [Not Recovered/Not Resolved]
  - Plantar fasciitis [Not Recovered/Not Resolved]
  - Impaired healing [Not Recovered/Not Resolved]
  - Pain [Not Recovered/Not Resolved]
  - Pain in extremity [Not Recovered/Not Resolved]
  - Urinary incontinence [Not Recovered/Not Resolved]
  - Burning sensation [Not Recovered/Not Resolved]
  - Contusion [Not Recovered/Not Resolved]
  - Chest pain [Not Recovered/Not Resolved]
  - Palpitations [Not Recovered/Not Resolved]
  - Vertigo [Not Recovered/Not Resolved]
  - Product use in unapproved indication [Unknown]
  - Fall [Not Recovered/Not Resolved]
  - Feeling abnormal [Not Recovered/Not Resolved]
  - Memory impairment [Not Recovered/Not Resolved]
